FAERS Safety Report 9590280 (Version 1)
Quarter: 2013Q4

REPORT INFORMATION
  Report Type: Spontaneous
  Country: US (occurrence: US)
  Receive Date: 20131003
  Receipt Date: 20131003
  Transmission Date: 20140711
  Serious: No
  Sender: FDA-Public Use
  Company Number: US-AMGEN-USASP2012076366

PATIENT
  Age: 32 Year
  Sex: Female
  Weight: 65.76 kg

DRUGS (5)
  1. ENBREL [Suspect]
     Indication: RHEUMATOID ARTHRITIS
     Dosage: 50 MG, QWK
  2. PLAQUENIL                          /00072602/ [Concomitant]
     Dosage: 200 MG, UNK
     Route: 048
  3. LEVOTHYROXIN [Concomitant]
     Dosage: 25 MCG, UNK
     Route: 048
  4. DICLOFENAC [Concomitant]
     Dosage: 100 MG, UNK
  5. PREDNISONE [Concomitant]
     Dosage: 10 MG, UNK

REACTIONS (1)
  - Urticaria [Unknown]
